FAERS Safety Report 7395628-3 (Version None)
Quarter: 2011Q2

REPORT INFORMATION
  Report Type: 
  Country: None (occurrence: None)
  Receive Date: 20110405
  Receipt Date: 20091202
  Transmission Date: 20111010
  Serious: Yes (Hospitalization, Other)
  Sender: FDA-Public Use
  Company Number: PHHY2009DE55316

PATIENT
  Sex: Female

DRUGS (3)
  1. EXTAVIA [Suspect]
     Indication: MULTIPLE SCLEROSIS
     Dosage: 1 ML, QOD
     Route: 058
     Dates: start: 20091109, end: 20091207
  2. PANDEMRIX [Suspect]
     Indication: INFLUENZA IMMUNISATION
     Dosage: UNK
     Dates: start: 20091130, end: 20091130
  3. EXTAVIA [Suspect]
     Dosage: 0.5 ML, QOD
     Route: 058
     Dates: start: 20091215, end: 20091220

REACTIONS (5)
  - PYREXIA [None]
  - SINUSITIS [None]
  - INFLUENZA LIKE ILLNESS [None]
  - PARALYSIS [None]
  - CONDITION AGGRAVATED [None]
